FAERS Safety Report 7939698-X (Version None)
Quarter: 2011Q4

REPORT INFORMATION
  Report Type: 
  Country: None (occurrence: None)
  Receive Date: 20111125
  Receipt Date: 20111116
  Transmission Date: 20120403
  Serious: Yes (Other)
  Sender: FDA-Public Use
  Company Number: PHHY2011CA00734

PATIENT
  Sex: Female

DRUGS (1)
  1. ZOLEDRONOC ACID [Suspect]
     Indication: OSTEOPOROSIS
     Dosage: 5 MG
     Route: 042
     Dates: start: 20090918

REACTIONS (7)
  - SLEEP APNOEA SYNDROME [None]
  - INSOMNIA [None]
  - BONE PAIN [None]
  - ARTHRALGIA [None]
  - ABDOMINAL HERNIA [None]
  - DISCOMFORT [None]
  - PAIN [None]
